FAERS Safety Report 10778988 (Version 1)
Quarter: 2015Q1

REPORT INFORMATION
  Report Type: Spontaneous
  Country: US (occurrence: None)
  Receive Date: 20150205
  Receipt Date: 20150205
  Transmission Date: 20150721
  Serious: No
  Sender: FDA-Public Use
  Company Number: None

PATIENT
  Age: 47 Year
  Sex: Female

DRUGS (1)
  1. HYDROCODONE/ACETAMINOPHEN [Suspect]
     Active Substance: ACETAMINOPHEN\HYDROCODONE
     Indication: PAIN IN EXTREMITY
     Route: 048
     Dates: start: 20141008

REACTIONS (4)
  - Confusional state [None]
  - Constipation [None]
  - Rash [None]
  - Dizziness [None]

NARRATIVE: CASE EVENT DATE: 201411
